FAERS Safety Report 5212939-8 (Version None)
Quarter: 2007Q1

REPORT INFORMATION
  Report Type: 
  Country: None (occurrence: None)
  Receive Date: 20070117
  Receipt Date: 20070117
  Transmission Date: 20070707
  Serious: Yes (Hospitalization)
  Sender: FDA-Public Use
  Company Number: None

PATIENT
  Age: 60 Year
  Sex: Male

DRUGS (11)
  1. MORPHINE SULFATE [Suspect]
     Indication: PROCEDURAL PAIN
     Dosage: IV BOLUS
  2. ACETAMINOPHEN [Concomitant]
  3. ALBUTEROL [Concomitant]
  4. ALBUTEROL SULFATE AND IPRATROPIUM BROMIDE [Concomitant]
  5. BISACODYL [Concomitant]
  6. DOCUSATE SODIUM [Concomitant]
  7. ENOXAPARIN SODIUM [Concomitant]
  8. IPRATROPIUM BROM [Concomitant]
  9. MAGNESIUM HYDROXIDE TAB [Concomitant]
  10. MOXIFLOXACIN [Concomitant]
  11. MULTI-VITAMIN [Concomitant]

REACTIONS (1)
  - DELIRIUM [None]
